FAERS Safety Report 7266448 (Version 2)
Quarter: 2013Q3

REPORT INFORMATION
  Report Type: Spontaneous
  Country: US (occurrence: US)
  Receive Date: 20100131
  Receipt Date: 20130719
  Transmission Date: 20140515
  Serious: Yes (Other)
  Sender: FDA-Public Use
  Company Number: US-JNJFOC-20100109413

PATIENT
  Sex: Female
  Weight: 70.31 kg

DRUGS (4)
  1. REMICADE [Suspect]
     Indication: RHEUMATOID ARTHRITIS
     Route: 042
     Dates: start: 2004
  2. PREDNISONE [Concomitant]
     Indication: RHEUMATOID ARTHRITIS
  3. METHOTREXATE [Concomitant]
     Indication: RHEUMATOID ARTHRITIS
  4. ATENOLOL [Concomitant]
     Indication: HYPERTENSION

REACTIONS (4)
  - Respiratory disorder [Unknown]
  - Lymphoma [Unknown]
  - Nasopharyngitis [Unknown]
  - Chest discomfort [Unknown]
